FAERS Safety Report 13075665 (Version 1)
Quarter: 2016Q4

REPORT INFORMATION
  Report Type: Spontaneous
  Country: JP (occurrence: JP)
  Receive Date: 20161230
  Receipt Date: 20161230
  Transmission Date: 20170207
  Serious: Yes (Death, Hospitalization, Other)
  Sender: FDA-Public Use
  Company Number: JP-TEVA-724120ISR

PATIENT
  Age: 2 Year
  Sex: Male
  Weight: 11.5 kg

DRUGS (3)
  1. NIFEDIPINE. [Suspect]
     Active Substance: NIFEDIPINE
     Indication: ACCIDENTAL OVERDOSE
     Dosage: UNKNOWN AMOUNT
     Route: 048
  2. LIDOCAINE. [Concomitant]
     Active Substance: LIDOCAINE
     Route: 065
  3. PHENOBARBITAL. [Concomitant]
     Active Substance: PHENOBARBITAL
     Indication: SEIZURE
     Route: 065

REACTIONS (6)
  - Seizure [Unknown]
  - Dizziness [Unknown]
  - Toxicity to various agents [Fatal]
  - Overdose [Fatal]
  - Cardiac arrest [Unknown]
  - Accidental exposure to product [Fatal]
